FAERS Safety Report 7405607-5 (Version None)
Quarter: 2011Q2

REPORT INFORMATION
  Report Type: 
  Country: None (occurrence: None)
  Receive Date: 20110411
  Receipt Date: 20110406
  Transmission Date: 20111010
  Serious: Yes (Death, Other)
  Sender: FDA-Public Use
  Company Number: PHHY2011CA20000

PATIENT
  Sex: Female

DRUGS (13)
  1. CLOZARIL [Suspect]
     Indication: SCHIZOPHRENIA
     Dosage: 100-200 MG/DAY
     Dates: start: 20030528, end: 20110309
  2. COLACE [Concomitant]
  3. K-DUR [Concomitant]
  4. AMILORIDE HYDROCHLORIDE [Concomitant]
  5. NEURONTIN [Concomitant]
     Dosage: 600 MG, QHS
  6. EXELON [Concomitant]
     Dosage: 3 MG, BID
  7. LACTULOSE [Concomitant]
  8. CELEBREX [Concomitant]
     Dosage: UNK
     Dates: end: 20101026
  9. RIVOTRIL [Concomitant]
     Dosage: 0.5 MG, BID
  10. OXYBUTYNIN [Concomitant]
     Dosage: 5 MG, BID
  11. QUININE SULFATE [Concomitant]
     Dosage: 300 MG, QHS
  12. NEURONTIN [Concomitant]
     Dosage: 300 MG, BID
  13. RIVOTRIL [Concomitant]
     Dosage: 0.5 MG, QHS

REACTIONS (6)
  - PULMONARY OEDEMA [None]
  - COMA [None]
  - PULMONARY EMBOLISM [None]
  - MYOCARDIAL INFARCTION [None]
  - CARDIOMEGALY [None]
  - BODY TEMPERATURE INCREASED [None]
